FAERS Safety Report 6474826-7 (Version None)
Quarter: 2009Q4

REPORT INFORMATION
  Report Type: 
  Country: None (occurrence: None)
  Receive Date: 20091204
  Receipt Date: 20091124
  Transmission Date: 20100525
  Serious: Yes (Disabling, Other)
  Sender: FDA-Public Use
  Company Number: GB-GILEAD-2009-0025680

PATIENT
  Age: 32 Year
  Sex: Male
  Weight: 78 kg

DRUGS (5)
  1. EMTRIVA [Suspect]
     Indication: HIV INFECTION
     Dates: start: 20060928
  2. VIREAD [Suspect]
     Indication: HIV INFECTION
     Dates: start: 20060928
  3. SUSTIVA [Suspect]
     Indication: HIV INFECTION
     Route: 048
     Dates: start: 20060929
  4. SUSTIVA [Suspect]
     Route: 048
     Dates: start: 20061110
  5. CO-TRIMOXAZOLE [Concomitant]
     Dates: start: 20050901

REACTIONS (4)
  - DIZZINESS [None]
  - DRUG LEVEL INCREASED [None]
  - NERVOUS SYSTEM DISORDER [None]
  - SLEEP DISORDER [None]
